FAERS Safety Report 21064964 (Version 2)
Quarter: 2022Q4

REPORT INFORMATION
  Report Type: Report from Study
  Country: US (occurrence: US)
  Receive Date: 20220711
  Receipt Date: 20221020
  Transmission Date: 20230113
  Serious: Yes (Other)
  Sender: FDA-Public Use
  Company Number: US-BRISTOL-MYERS SQUIBB COMPANY-2022-065061

PATIENT
  Age: 80 Year
  Sex: Female
  Weight: 54.43 kg

DRUGS (18)
  1. POMALYST [Suspect]
     Active Substance: POMALIDOMIDE
     Indication: Plasma cell myeloma
     Dosage: DAILY ON DAYS 1 THROUGH 21 OF A 28 DAY CYCLE
     Route: 048
     Dates: start: 202001
  2. POMALYST [Suspect]
     Active Substance: POMALIDOMIDE
     Dosage: TAKE 1 CAPSULE DAILY ON DAYS 1 THROUGH 21 OF A 28 DAY CYCLE
     Route: 048
     Dates: start: 202001
  3. XGEVA [Concomitant]
     Active Substance: DENOSUMAB
  4. LUTEIN [TAGETES SPP.] [Concomitant]
  5. HYDROCHLOROTHIAZIDE\VALSARTAN [Concomitant]
     Active Substance: HYDROCHLOROTHIAZIDE\VALSARTAN
  6. DEXILANT [Concomitant]
     Active Substance: DEXLANSOPRAZOLE
  7. WELCHOL [Concomitant]
     Active Substance: COLESEVELAM HYDROCHLORIDE
  8. ACYCLOVIR [Concomitant]
     Active Substance: ACYCLOVIR
  9. MAGNESIUM [Concomitant]
     Active Substance: MAGNESIUM
  10. DARZALEX [Concomitant]
     Active Substance: DARATUMUMAB
  11. CALTRATE 600+D3 PLUS MINERALS [BORON;CALCIUM;COLECALCIFEROL;COPPER;MAG [Concomitant]
  12. SYNTHROID [Concomitant]
     Active Substance: LEVOTHYROXINE SODIUM
  13. VITAMIN D3 [Concomitant]
     Active Substance: CHOLECALCIFEROL
  14. ASPIRIN [Concomitant]
     Active Substance: ASPIRIN
  15. COENZYME Q10 [Concomitant]
     Active Substance: DIETARY SUPPLEMENT\UBIDECARENONE
  16. GLICLAZIDE [Concomitant]
     Active Substance: GLICLAZIDE
  17. FISH OIL [Concomitant]
     Active Substance: FISH OIL
  18. DEXAMETHASONE [Concomitant]
     Active Substance: DEXAMETHASONE

REACTIONS (3)
  - Asthenia [Unknown]
  - Deafness [Unknown]
  - Amnesia [Unknown]
